FAERS Safety Report 8459139 (Version 3)
Quarter: 2014Q1

REPORT INFORMATION
  Report Type: Report from Study
  Country: FR (occurrence: FR)
  Receive Date: 20120314
  Receipt Date: 20140306
  Transmission Date: 20141002
  Serious: Yes (Hospitalization)
  Sender: FDA-Public Use
  Company Number: PHHO2012FR001258

PATIENT
  Sex: 0

DRUGS (10)
  1. EVEROLIMUS [Suspect]
     Indication: HEPATOCELLULAR CARCINOMA
     Dosage: 7.5 MG, QD
     Route: 048
     Dates: start: 20111119, end: 20111201
  2. EVEROLIMUS [Suspect]
     Dosage: 7.5 MG, QD
     Route: 048
     Dates: start: 20111209, end: 20111223
  3. ZOMETA [Suspect]
     Indication: METASTATIC PAIN
     Dosage: 4 MG, PRN
     Route: 042
     Dates: start: 20111209, end: 20111209
  4. DIAMICRON [Concomitant]
     Indication: DIABETES MELLITUS
     Dosage: 12 MG, QID
     Route: 048
     Dates: start: 1996, end: 20111230
  5. SIMVASTATIN [Concomitant]
     Indication: TYPE 2 DIABETES MELLITUS
     Dosage: 40 MG, QID
     Route: 048
     Dates: start: 2006, end: 20111230
  6. KENZEN [Concomitant]
     Indication: PROPHYLAXIS
     Dosage: 15 MG, QID
     Route: 048
     Dates: start: 201101, end: 20111230
  7. PLAVIX [Concomitant]
     Indication: ANTICOAGULANT THERAPY
     Dosage: 75 MG, QID
     Route: 048
     Dates: start: 201003
  8. LANTUS [Concomitant]
     Indication: DIABETES MELLITUS
     Dosage: 12 U QID
     Route: 058
     Dates: start: 20111017, end: 20111230
  9. BARACLUDE [Concomitant]
     Indication: HEPATITIS B
     Dosage: 0.5 MG EVERY 72 HOURS
     Route: 048
     Dates: start: 20110905, end: 20111230
  10. JANUVIA [Concomitant]
     Indication: TYPE 2 DIABETES MELLITUS
     Dosage: 100 MG, QID
     Route: 048
     Dates: start: 201108, end: 20111230

REACTIONS (4)
  - Acute pulmonary oedema [Recovered/Resolved]
  - Gastroenteritis [Recovered/Resolved]
  - Septic shock [Recovered/Resolved]
  - Renal failure acute [Recovered/Resolved]
